FAERS Safety Report 22250556 (Version 3)
Quarter: 2024Q1

REPORT INFORMATION
  Report Type: Spontaneous
  Country: CA (occurrence: CA)
  Receive Date: 20230425
  Receipt Date: 20240221
  Transmission Date: 20240409
  Serious: Yes (Other)
  Sender: FDA-Public Use
  Company Number: CA-PFIZER INC-202300166543

PATIENT
  Age: 59 Year
  Sex: Male

DRUGS (5)
  1. METHOTREXATE SODIUM [Suspect]
     Active Substance: METHOTREXATE SODIUM
     Indication: Psoriatic arthropathy
     Dosage: 2.5 MG, 1X/DAY (8 TABS DAILY)
     Dates: start: 202209
  2. FOLIC ACID [Concomitant]
     Active Substance: FOLIC ACID
     Dosage: 5 MG, 1X/DAY
     Dates: start: 202209
  3. INFLECTRA [Concomitant]
     Active Substance: INFLIXIMAB-DYYB
     Indication: Psoriatic arthropathy
     Dosage: 470 MG, INDUCTION W0,2,6 THEN Q (EVERY) 8 WEEKS
     Route: 042
     Dates: start: 20230505
  4. INFLECTRA [Concomitant]
     Active Substance: INFLIXIMAB-DYYB
     Dosage: 470 MG, INDUCTION W0,2,6 THEN Q (EVERY) 8 WEEKS
     Route: 042
     Dates: start: 20231011
  5. LEFLUNOMIDE [Concomitant]
     Active Substance: LEFLUNOMIDE
     Dosage: 20 MG, 1X/DAY
     Dates: start: 202207

REACTIONS (2)
  - Knee arthroplasty [Unknown]
  - Post procedural complication [Unknown]
